FAERS Safety Report 10027778 (Version 1)
Quarter: 2014Q1

REPORT INFORMATION
  Report Type: Spontaneous
  Country: US (occurrence: US)
  Receive Date: 20140321
  Receipt Date: 20140321
  Transmission Date: 20141002
  Serious: Yes (Other)
  Sender: FDA-Public Use
  Company Number: US-NOVOPROD-403509

PATIENT
  Age: 84 Year
  Sex: Female
  Weight: 57.6 kg

DRUGS (2)
  1. VICTOZA [Suspect]
     Indication: TYPE 2 DIABETES MELLITUS
     Dosage: 1.8 MG, QD
     Route: 058
     Dates: start: 201403, end: 201403
  2. VICTOZA [Suspect]
     Dosage: 1.2 MG, QD
     Route: 058
     Dates: start: 201309, end: 201403

REACTIONS (1)
  - Pancreatic carcinoma metastatic [Not Recovered/Not Resolved]
